FAERS Safety Report 8495363-4 (Version None)
Quarter: 2012Q3

REPORT INFORMATION
  Report Type: 
  Country: None (occurrence: None)
  Receive Date: 20120702
  Receipt Date: 20120702
  Transmission Date: 20120928
  Serious: No
  Sender: FDA-Public Use
  Company Number: None

PATIENT
  Age: 85 Year
  Sex: Male
  Weight: 104.3273 kg

DRUGS (1)
  1. PRADAXA [Suspect]

REACTIONS (1)
  - BLOOD URINE PRESENT [None]
